FAERS Safety Report 7943307-3 (Version None)
Quarter: 2011Q4

REPORT INFORMATION
  Report Type: 
  Country: None (occurrence: None)
  Receive Date: 20111128
  Receipt Date: 20111123
  Transmission Date: 20120403
  Serious: Yes (Other)
  Sender: FDA-Public Use
  Company Number: PHHY2011US15130

PATIENT
  Sex: Male

DRUGS (2)
  1. EXTAVIA [Suspect]
     Dosage: 0.3 MG, QOD
     Route: 058
     Dates: start: 20101028
  2. EXTAVIA [Suspect]
     Indication: MULTIPLE SCLEROSIS
     Dosage: 0.25 MG, QOD
     Route: 058

REACTIONS (9)
  - ABDOMINAL DISCOMFORT [None]
  - HEADACHE [None]
  - INJECTION SITE ERYTHEMA [None]
  - DEPRESSION [None]
  - INFLUENZA LIKE ILLNESS [None]
  - FATIGUE [None]
  - PAIN [None]
  - DIARRHOEA [None]
  - ANORECTAL DISCOMFORT [None]
